FAERS Safety Report 9602448 (Version 12)
Quarter: 2014Q1

REPORT INFORMATION
  Report Type: Spontaneous
  Country: US (occurrence: US)
  Receive Date: 20131007
  Receipt Date: 20140218
  Transmission Date: 20141002
  Serious: Yes (Hospitalization, Other)
  Sender: FDA-Public Use
  Company Number: US-009507513-1203USA01841

PATIENT
  Sex: Female
  Weight: 65.76 kg

DRUGS (7)
  1. FOSAMAX [Suspect]
     Indication: OSTEOPENIA
     Dosage: 70 MG, UNK
     Route: 048
     Dates: start: 20050112, end: 200509
  2. ZOMETA [Suspect]
     Indication: BREAST CANCER METASTATIC
     Dosage: 3-4 MG/5 ML
     Dates: start: 20060601, end: 20100819
  3. ZYRTEC [Concomitant]
     Indication: HYPERSENSITIVITY
     Dosage: 10 MG, QD
     Route: 048
     Dates: start: 20050112, end: 20070622
  4. PATANOL [Concomitant]
     Indication: HYPERSENSITIVITY
     Dosage: UNK
     Dates: start: 20050203, end: 20050217
  5. FLUTICASONE [Concomitant]
     Indication: HYPERSENSITIVITY
     Dosage: UNK
     Dates: start: 20050802, end: 20090613
  6. VAGIFEM [Concomitant]
     Indication: POSTMENOPAUSE
     Dosage: UNK
     Dates: start: 20050919, end: 20051219
  7. ZOLOFT [Concomitant]
     Dosage: 50 MG, QD
     Dates: start: 20050112, end: 20100122

REACTIONS (83)
  - Intramedullary rod insertion [Unknown]
  - Intramedullary rod insertion [Unknown]
  - Intramedullary rod insertion [Unknown]
  - Removal of internal fixation [Unknown]
  - Femur fracture [Unknown]
  - Breast reconstruction [Unknown]
  - Metastases to lymph nodes [Unknown]
  - Impaired healing [Unknown]
  - Hip arthroplasty [Unknown]
  - Metastases to bone [Unknown]
  - Metastases to spine [Unknown]
  - Musculoskeletal disorder [Unknown]
  - Breast cancer [Unknown]
  - Metastasis [Unknown]
  - Hip arthroplasty [Unknown]
  - Spinal laminectomy [Unknown]
  - Cerebrospinal fluid leakage [Recovered/Resolved]
  - Spinal decompression [Unknown]
  - Metastases to liver [Unknown]
  - Metastases to lung [Unknown]
  - Malignant melanoma [Unknown]
  - Spinal fusion surgery [Unknown]
  - Internal fixation of fracture [Unknown]
  - Femur fracture [Unknown]
  - Femur fracture [Unknown]
  - Fracture nonunion [Unknown]
  - Device breakage [Unknown]
  - Depression [Unknown]
  - Low turnover osteopathy [Unknown]
  - Hypercholesterolaemia [Unknown]
  - Infection [Unknown]
  - Infection [Unknown]
  - Infection [Unknown]
  - Pain [Unknown]
  - Viral infection [Unknown]
  - Viral infection [Unknown]
  - Dermatitis [Unknown]
  - Infection [Unknown]
  - Anaemia [Unknown]
  - Fall [Unknown]
  - Sinus disorder [Unknown]
  - Paranasal cyst [Unknown]
  - Renal cyst [Unknown]
  - Arteriosclerosis [Unknown]
  - Cardiomegaly [Unknown]
  - Pulmonary mass [Unknown]
  - Haemangioma of bone [Unknown]
  - Spinal osteoarthritis [Unknown]
  - Sinus congestion [Unknown]
  - Anaemia [Unknown]
  - Hypokalaemia [Unknown]
  - Hyperlipidaemia [Unknown]
  - Cellulitis [Unknown]
  - Prealbumin decreased [Unknown]
  - Decreased appetite [Recovering/Resolving]
  - Weight decreased [Recovering/Resolving]
  - Urinary tract infection enterococcal [Unknown]
  - Stupor [Unknown]
  - Bone lesion [Unknown]
  - Haemorrhagic anaemia [Recovering/Resolving]
  - Device breakage [Unknown]
  - Pulmonary mass [Unknown]
  - Compression fracture [Unknown]
  - Fall [Unknown]
  - Rib fracture [Not Recovered/Not Resolved]
  - Lymphadenectomy [Unknown]
  - Bone infarction [Unknown]
  - Facet joint syndrome [Unknown]
  - Fractured sacrum [Unknown]
  - Depression [Unknown]
  - Tenosynovitis stenosans [Unknown]
  - Activities of daily living impaired [Unknown]
  - Arthritis [Unknown]
  - Sinus headache [Unknown]
  - Pollakiuria [Unknown]
  - Asthenia [Unknown]
  - Oedema peripheral [Recovering/Resolving]
  - Back pain [Unknown]
  - Arthralgia [Unknown]
  - Gastrooesophageal reflux disease [Unknown]
  - Pain in extremity [Unknown]
  - Nausea [Unknown]
  - Hypocalcaemia [Unknown]
